FAERS Safety Report 8117947-5 (Version None)
Quarter: 2012Q1

REPORT INFORMATION
  Report Type: 
  Country: None (occurrence: None)
  Receive Date: 20120201
  Receipt Date: 20120118
  Transmission Date: 20120608
  Serious: Yes (Other)
  Sender: FDA-Public Use
  Company Number: AXC-2012-000015

PATIENT
  Age: 38 Year
  Sex: Female

DRUGS (1)
  1. URSODEOXYCHOLIC ACID (URSODEOXYCHOLIC ACID) UNKNOWN [Suspect]
     Indication: CHOLELITHIASIS
     Dosage: 1 DF, QD, ORAL
     Route: 048
     Dates: start: 20110717, end: 20110729

REACTIONS (4)
  - CHOLELITHIASIS [None]
  - GALLBLADDER EMPYEMA [None]
  - GALLBLADDER FISTULA [None]
  - TRANSAMINASES INCREASED [None]
